FAERS Safety Report 19047407 (Version 1)
Quarter: 2021Q1

REPORT INFORMATION
  Report Type: Spontaneous
  Country: CN (occurrence: CN)
  Receive Date: 20210323
  Receipt Date: 20210323
  Transmission Date: 20210420
  Serious: Yes (Other)
  Sender: FDA-Public Use
  Company Number: CN-PFIZER INC-2021269555

PATIENT
  Age: 24 Year
  Sex: Female
  Weight: 71 kg

DRUGS (3)
  1. CARBOPROST METHYLATE [Concomitant]
     Indication: UTERINE ATONY
     Dosage: 1 MG, 1X/DAY
     Route: 054
     Dates: start: 20210220, end: 20210220
  2. CARBETOCIN [Concomitant]
     Active Substance: CARBETOCIN
     Indication: UTERINE ATONY
     Dosage: 100 IU, 1X/DAY
     Route: 041
     Dates: start: 20210220, end: 20210220
  3. CARBOPROST TROMETAMOL [Suspect]
     Active Substance: CARBOPROST TROMETHAMINE
     Indication: UTERINE ATONY
     Dosage: 250 UG, 1X/DAY
     Route: 030
     Dates: start: 20210220, end: 20210220

REACTIONS (3)
  - Vomiting [Recovering/Resolving]
  - Abdominal pain upper [Recovering/Resolving]
  - Nausea [Recovering/Resolving]

NARRATIVE: CASE EVENT DATE: 20210220
